FAERS Safety Report 18323652 (Version 1)
Quarter: 2020Q3

REPORT INFORMATION
  Report Type: Report from Study
  Country: JP (occurrence: JP)
  Receive Date: 20200929
  Receipt Date: 20200929
  Transmission Date: 20201103
  Serious: Yes (Other)
  Sender: FDA-Public Use
  Company Number: JP-MYLANLABS-2020M1082010

PATIENT
  Age: 77 Year
  Sex: Female

DRUGS (5)
  1. CARBOPLATIN. [Suspect]
     Active Substance: CARBOPLATIN
     Indication: NON-SMALL CELL LUNG CANCER
     Dosage: AS FIRST?LINE TREATMENT, 2 YEARS BEFORE THE STUDY ENROLLMENT
     Route: 065
  2. DOCETAXEL. [Suspect]
     Active Substance: DOCETAXEL
     Indication: NON-SMALL CELL LUNG CANCER
     Dosage: 60 MILLIGRAM/SQ. METER, ON DAY 1 OF A 21?DAY CYCLE
     Route: 042
  3. CYRAMZA [Suspect]
     Active Substance: RAMUCIRUMAB
     Indication: NON-SMALL CELL LUNG CANCER
     Dosage: 10 MILLIGRAM/KILOGRAM, ON DAY 1 OF A 21?DAY CYCLE
     Route: 042
  4. PEGFILGRASTIM [Concomitant]
     Active Substance: PEGFILGRASTIM
     Indication: PROPHYLAXIS
     Dosage: 3.6 MILLIGRAM, ON DAY 2 OF A 21?DAY CYCLE
     Route: 058
  5. PACLITAXEL. [Suspect]
     Active Substance: PACLITAXEL
     Indication: NON-SMALL CELL LUNG CANCER
     Dosage: AS FIRST?LINE TREATMENT, 2 YEARS BEFORE THE STUDY ENROLLMENT
     Route: 065

REACTIONS (3)
  - Leukopenia [Unknown]
  - Myelodysplastic syndrome [Unknown]
  - Mouth haemorrhage [Unknown]
